FAERS Safety Report 5609728-9 (Version None)
Quarter: 2008Q1

REPORT INFORMATION
  Report Type: 
  Country: None (occurrence: None)
  Receive Date: 20080131
  Receipt Date: 20080124
  Transmission Date: 20080703
  Serious: Yes (Other)
  Sender: FDA-Public Use
  Company Number: DE-PFIZER INC-2007102656

PATIENT
  Sex: Male
  Weight: 78 kg

DRUGS (3)
  1. SORTIS [Suspect]
     Indication: HYPERLIPIDAEMIA
     Dosage: DAILY DOSE:10MG
     Route: 048
     Dates: start: 20061201, end: 20070921
  2. METFORMIN HCL [Concomitant]
     Route: 048
  3. AVANDIA [Concomitant]
     Route: 048
     Dates: start: 20061201

REACTIONS (4)
  - ARTHRALGIA [None]
  - LOWER LIMB FRACTURE [None]
  - MUSCLE DISORDER [None]
  - UPPER LIMB FRACTURE [None]
